FAERS Safety Report 19916784 (Version 1)
Quarter: 2021Q4

REPORT INFORMATION
  Report Type: Spontaneous
  Country: US (occurrence: US)
  Receive Date: 20211005
  Receipt Date: 20211005
  Transmission Date: 20220303
  Serious: Yes (Hospitalization)
  Sender: FDA-Public Use
  Company Number: US-DRREDDYS-LIT/USA/21/0142316

PATIENT
  Age: 27 Year
  Sex: Female

DRUGS (1)
  1. TIZANIDINE HYDROCHLORIDE [Suspect]
     Active Substance: TIZANIDINE HYDROCHLORIDE
     Indication: Product used for unknown indication
     Dosage: INTENTIONALLY INGESTING 12 TABLETS OF TIZANIDINE 4MG

REACTIONS (8)
  - Hyperhidrosis [Unknown]
  - Hyperglycaemia [Recovering/Resolving]
  - Confusional state [Recovering/Resolving]
  - Dizziness [Unknown]
  - Hypertension [Unknown]
  - Dysarthria [Unknown]
  - Sinus bradycardia [Recovered/Resolved]
  - Somnolence [Not Recovered/Not Resolved]
